FAERS Safety Report 9018390 (Version 2)
Quarter: 2013Q1

REPORT INFORMATION
  Report Type: Spontaneous
  Country: US (occurrence: US)
  Receive Date: 20130118
  Receipt Date: 20130129
  Transmission Date: 20140127
  Serious: No
  Sender: FDA-Public Use
  Company Number: US-PFIZER INC-2013016496

PATIENT
  Sex: Female

DRUGS (3)
  1. XELJANZ [Suspect]
     Dosage: UNK
  2. ENBREL [Suspect]
     Dosage: UNK
  3. ARAVA [Suspect]
     Dosage: UNK

REACTIONS (4)
  - Drug ineffective [Unknown]
  - Drug effect incomplete [Unknown]
  - Condition aggravated [Unknown]
  - Pain [Unknown]
